FAERS Safety Report 18092587 (Version 1)
Quarter: 2020Q3

REPORT INFORMATION
  Report Type: Spontaneous
  Country: US (occurrence: US)
  Receive Date: 20200730
  Receipt Date: 20200730
  Transmission Date: 20201103
  Serious: No
  Sender: FDA-Public Use
  Company Number: US-GLAXOSMITHKLINE-US2020140223

PATIENT
  Sex: Female

DRUGS (2)
  1. VENTOLIN HFA [Suspect]
     Active Substance: ALBUTEROL SULFATE
     Indication: ASTHMA
     Dosage: UNK (AS REQUIRED)
     Route: 055
  2. BREO ELLIPTA [Suspect]
     Active Substance: FLUTICASONE FUROATE\VILANTEROL TRIFENATATE
     Indication: ASTHMA
     Dosage: 1 PUFF(S), QD
     Route: 055

REACTIONS (18)
  - Dyspnoea [Unknown]
  - Chest pain [Recovered/Resolved]
  - Nervousness [Unknown]
  - Asthenia [Unknown]
  - Breast swelling [Unknown]
  - Mouth swelling [Unknown]
  - Swelling face [Unknown]
  - Back pain [Unknown]
  - Bone disorder [Unknown]
  - Gait disturbance [Unknown]
  - Joint swelling [Unknown]
  - Swelling [Unknown]
  - Nausea [Unknown]
  - Headache [Unknown]
  - Peripheral swelling [Unknown]
  - Bone pain [Unknown]
  - Fatigue [Unknown]
  - Pruritus [Unknown]
